FAERS Safety Report 24997130 (Version 1)
Quarter: 2025Q1

REPORT INFORMATION
  Report Type: Other
  Country: IT (occurrence: IT)
  Receive Date: 20250221
  Receipt Date: 20250221
  Transmission Date: 20250408
  Serious: Yes (Life-Threatening, Other)
  Sender: B BRAUN
  Company Number: IT-B.Braun Medical Inc.-2171590

PATIENT
  Age: 5 Month
  Sex: Male

DRUGS (4)
  1. MEROPENEM [Suspect]
     Active Substance: MEROPENEM
     Indication: Blood culture
  2. MEROPENEM [Suspect]
     Active Substance: MEROPENEM
     Indication: Enterobacter infection
  3. AMIKACIN [Suspect]
     Active Substance: AMIKACIN
  4. PENTAGLOBIN [Concomitant]
     Active Substance: HUMAN IMMUNOGLOBULIN G

REACTIONS (2)
  - Condition aggravated [Recovering/Resolving]
  - Thrombocytopenia neonatal [Not Recovered/Not Resolved]
